FAERS Safety Report 15540343 (Version 1)
Quarter: 2018Q4

REPORT INFORMATION
  Report Type: Spontaneous
  Country: US (occurrence: US)
  Receive Date: 20181023
  Receipt Date: 20181023
  Transmission Date: 20190205
  Serious: No
  Sender: FDA-Public Use
  Company Number: US-PFIZER INC-2018375199

PATIENT
  Age: 67 Year
  Sex: Male

DRUGS (1)
  1. IBRANCE [Suspect]
     Active Substance: PALBOCICLIB
     Indication: HEPATIC CANCER
     Dosage: 75 MG, UNK

REACTIONS (5)
  - Fatigue [Unknown]
  - Memory impairment [Unknown]
  - Product use in unapproved indication [Unknown]
  - Confusional state [Unknown]
  - Balance disorder [Unknown]
